FAERS Safety Report 15221423 (Version 1)
Quarter: 2018Q3

REPORT INFORMATION
  Report Type: Spontaneous
  Country: US (occurrence: US)
  Receive Date: 20180703
  Receipt Date: 20180703
  Transmission Date: 20181010
  Serious: Yes (Life-Threatening, Hospitalization)
  Sender: FDA-Public Use
  Company Number: None

PATIENT
  Age: 24 Year
  Sex: Male

DRUGS (1)
  1. ACETAMINOPHEN. [Suspect]
     Active Substance: ACETAMINOPHEN
     Route: 048
     Dates: start: 20180212, end: 20180214

REACTIONS (6)
  - Transaminases increased [None]
  - Hyperkalaemia [None]
  - Nausea [None]
  - Vomiting [None]
  - Hepatic enzyme abnormal [None]
  - Abdominal pain [None]

NARRATIVE: CASE EVENT DATE: 20180215
